FAERS Safety Report 14277785 (Version 4)
Quarter: 2018Q1

REPORT INFORMATION
  Report Type: Spontaneous
  Country: JP (occurrence: JP)
  Receive Date: 20171212
  Receipt Date: 20180306
  Transmission Date: 20180508
  Serious: Yes (Life-Threatening, Disabling, Other)
  Sender: FDA-Public Use
  Company Number: JP-B.I. PHARMACEUTICALS,INC./RIDGEFIELD-2017-NB-006135

PATIENT
  Age: 67 Year
  Sex: Male

DRUGS (1)
  1. PRAZAXA [Suspect]
     Active Substance: DABIGATRAN ETEXILATE MESYLATE
     Indication: ATRIAL FIBRILLATION
     Route: 048
     Dates: end: 20171011

REACTIONS (3)
  - Aortic aneurysm rupture [Recovered/Resolved with Sequelae]
  - Thrombosis [Unknown]
  - Leg amputation [Unknown]

NARRATIVE: CASE EVENT DATE: 20171009
